FAERS Safety Report 6359687-9 (Version None)
Quarter: 2009Q3

REPORT INFORMATION
  Report Type: 
  Country: None (occurrence: None)
  Receive Date: 20090917
  Receipt Date: 20090910
  Transmission Date: 20100115
  Serious: Yes (Death)
  Sender: FDA-Public Use
  Company Number: FR-PFIZER INC-2009260350

PATIENT
  Age: 60 Year

DRUGS (8)
  1. IRINOTECAN HCL [Suspect]
     Indication: METASTATIC GASTRIC CANCER
     Dosage: 180 MG/M2, EVERY 14 DAYS
     Route: 042
     Dates: start: 20080918, end: 20081023
  2. IRINOTECAN HCL [Suspect]
     Dosage: 180 MG/M2, UNK
     Route: 042
     Dates: start: 20081204, end: 20081204
  3. FLUOROURACIL [Suspect]
     Indication: METASTATIC GASTRIC CANCER
     Dosage: 400 MG/M2, EVERY 14 DAYS
     Route: 042
     Dates: start: 20080918, end: 20081023
  4. FLUOROURACIL [Suspect]
     Dosage: 2400 MG/M2, EVERY 14 DAYS
     Route: 042
     Dates: start: 20080918, end: 20081024
  5. FLUOROURACIL [Suspect]
     Dosage: 400 MG/M2, UNK
     Route: 042
     Dates: start: 20081204, end: 20081204
  6. FLUOROURACIL [Suspect]
     Dosage: 2400 MG/M2, UNK
     Route: 042
     Dates: start: 20081204, end: 20081205
  7. ELVORINE [Suspect]
     Indication: METASTATIC GASTRIC CANCER
     Dosage: 400 MG/M2, EVERY 14 DAYS
     Route: 042
     Dates: start: 20080918, end: 20081023
  8. ELVORINE [Suspect]
     Dosage: 200 MG/M2, UNK
     Route: 042
     Dates: start: 20081204, end: 20081204

REACTIONS (2)
  - FEBRILE BONE MARROW APLASIA [None]
  - GENERAL PHYSICAL HEALTH DETERIORATION [None]
